FAERS Safety Report 8220071-4 (Version None)
Quarter: 2012Q1

REPORT INFORMATION
  Report Type: 
  Country: None (occurrence: None)
  Receive Date: 20120320
  Receipt Date: 20120309
  Transmission Date: 20120608
  Serious: No
  Sender: FDA-Public Use
  Company Number: US-BIOGENIDEC-2012BI005145

PATIENT
  Age: 51 Year
  Sex: Female

DRUGS (2)
  1. TYSABRI [Suspect]
     Route: 042
     Dates: start: 20111111
  2. TYSABRI [Suspect]
     Indication: MULTIPLE SCLEROSIS
     Route: 042
     Dates: start: 20061215, end: 20101007

REACTIONS (11)
  - EAR DISCOMFORT [None]
  - MEMORY IMPAIRMENT [None]
  - UPPER RESPIRATORY TRACT INFECTION [None]
  - DIZZINESS [None]
  - PYREXIA [None]
  - HEADACHE [None]
  - HEMIPARESIS [None]
  - GAIT DISTURBANCE [None]
  - FALL [None]
  - BALANCE DISORDER [None]
  - MIGRAINE WITH AURA [None]
